FAERS Safety Report 11322824 (Version 6)
Quarter: 2015Q4

REPORT INFORMATION
  Report Type: Report from Study
  Country: US (occurrence: US)
  Receive Date: 20150730
  Receipt Date: 20151217
  Transmission Date: 20160304
  Serious: Yes (Other)
  Sender: FDA-Public Use
  Company Number: US-AMGEN-USASP2015074007

PATIENT
  Age: 76 Year
  Sex: Female

DRUGS (4)
  1. NPLATE [Suspect]
     Active Substance: ROMIPLOSTIM
     Indication: IMMUNE THROMBOCYTOPENIC PURPURA
     Dosage: UNK UNK, QD
     Route: 065
     Dates: start: 20101209
  2. IRON [Concomitant]
     Active Substance: IRON
  3. CHROMIUM                           /01050303/ [Concomitant]
     Indication: DIABETES MELLITUS
  4. NORVASC [Suspect]
     Active Substance: AMLODIPINE BESYLATE
     Indication: BLOOD PRESSURE ABNORMAL
     Dosage: UNK
     Route: 065

REACTIONS (31)
  - Platelet transfusion [Unknown]
  - Renal function test abnormal [Unknown]
  - Tongue disorder [Not Recovered/Not Resolved]
  - Nasopharyngitis [Unknown]
  - Injection site bruising [Unknown]
  - Peripheral coldness [Unknown]
  - Hypertension [Unknown]
  - Skin abrasion [Unknown]
  - House dust allergy [Unknown]
  - Urticaria [Not Recovered/Not Resolved]
  - Fall [Unknown]
  - Osteoarthritis [Unknown]
  - Decreased appetite [Unknown]
  - Flatulence [Unknown]
  - Thyroid neoplasm [Unknown]
  - Diarrhoea [Unknown]
  - Drug hypersensitivity [Unknown]
  - Vein disorder [Unknown]
  - Upper limb fracture [Unknown]
  - Limb discomfort [Not Recovered/Not Resolved]
  - Vitamin B12 abnormal [Unknown]
  - Petechiae [Recovered/Resolved]
  - Skin discolouration [Unknown]
  - Colon cancer [Unknown]
  - Gastrointestinal anastomotic leak [Recovering/Resolving]
  - Platelet count decreased [Unknown]
  - Blood folate increased [Unknown]
  - Body temperature abnormal [Not Recovered/Not Resolved]
  - Anaemia [Unknown]
  - Nausea [Unknown]
  - Oedema peripheral [Unknown]

NARRATIVE: CASE EVENT DATE: 201508
